FAERS Safety Report 14948855 (Version 1)
Quarter: 2018Q2

REPORT INFORMATION
  Report Type: Spontaneous
  Country: US (occurrence: US)
  Receive Date: 20180529
  Receipt Date: 20180529
  Transmission Date: 20180711
  Serious: Yes (Other)
  Sender: FDA-Public Use
  Company Number: US-SHIRE-US201819598

PATIENT
  Sex: Female

DRUGS (1)
  1. GATTEX [Suspect]
     Active Substance: TEDUGLUTIDE\WATER
     Indication: SHORT-BOWEL SYNDROME
     Dosage: 1.8 MG, 1X/DAY:QD
     Route: 058
     Dates: start: 20170920

REACTIONS (3)
  - Weight decreased [Unknown]
  - Stoma site haemorrhage [Unknown]
  - Back pain [Unknown]
